FAERS Safety Report 16806530 (Version 1)
Quarter: 2019Q3

REPORT INFORMATION
  Report Type: Spontaneous
  Country: US (occurrence: US)
  Receive Date: 20190913
  Receipt Date: 20190913
  Transmission Date: 20191005
  Serious: No
  Sender: FDA-Public Use
  Company Number: US-SA-2019SA252747

PATIENT

DRUGS (1)
  1. NASACORT AQ [Suspect]
     Active Substance: TRIAMCINOLONE ACETONIDE
     Dosage: UNK UNK, UNK

REACTIONS (1)
  - Migraine [Unknown]
